FAERS Safety Report 19991935 (Version 4)
Quarter: 2021Q4

REPORT INFORMATION
  Report Type: Report from Study
  Country: US (occurrence: US)
  Receive Date: 20211025
  Receipt Date: 20211213
  Transmission Date: 20220304
  Serious: Yes (Other)
  Sender: FDA-Public Use
  Company Number: US-ORGANON-O2110USA002196

PATIENT
  Age: 34 Year
  Sex: Female
  Weight: 103.86 kg

DRUGS (1)
  1. IMPLANON [Suspect]
     Active Substance: ETONOGESTREL
     Dosage: 1 IMPLANT OF 68 MG, ONE  EVERY THREE YEARS, LEFT ARM
     Route: 059
     Dates: start: 20211018, end: 20211018

REACTIONS (3)
  - Device expulsion [Recovered/Resolved]
  - Device placement issue [Recovered/Resolved]
  - No adverse event [Unknown]

NARRATIVE: CASE EVENT DATE: 20211018
